FAERS Safety Report 8409495-X (Version None)
Quarter: 2012Q2

REPORT INFORMATION
  Report Type: 
  Country: None (occurrence: None)
  Receive Date: 20120531
  Receipt Date: 20120531
  Transmission Date: 20120825
  Serious: Yes (Other)
  Sender: FDA-Public Use
  Company Number: None

PATIENT
  Sex: Male
  Weight: 120.2032 kg

DRUGS (1)
  1. PRADAXA [Suspect]
     Indication: ATRIAL FIBRILLATION
     Dosage: 1 CAPSULE 2 X DAILY
     Dates: start: 20110501, end: 20111001

REACTIONS (6)
  - GINGIVAL BLEEDING [None]
  - INFLAMMATION [None]
  - PAIN [None]
  - ABDOMINAL PAIN UPPER [None]
  - MOUTH HAEMORRHAGE [None]
  - ERYTHEMA [None]
